FAERS Safety Report 10414028 (Version 1)
Quarter: 2014Q3

REPORT INFORMATION
  Report Type: Spontaneous
  Country: GB (occurrence: None)
  Receive Date: 20140825
  Receipt Date: 20140825
  Transmission Date: 20150326
  Serious: Yes (Hospitalization)
  Sender: FDA-Public Use
  Company Number: AUR-APL-2014-08683

PATIENT
  Age: 78 Year
  Sex: Female

DRUGS (15)
  1. BISOPROLOL [Concomitant]
     Active Substance: BISOPROLOL
  2. GLYCERYL TRINITRATE [Concomitant]
     Active Substance: NITROGLYCERIN
  3. FUROSEMIDE (FUROSEMIDE) [Suspect]
     Active Substance: FUROSEMIDE
     Indication: PRODUCT USED FOR UNKNOWN INDICATION
  4. ASPIRIN. [Concomitant]
     Active Substance: ASPIRIN
  5. CEFALEXIN (CEFALEXIN) [Suspect]
     Active Substance: CEPHALEXIN
     Indication: URINARY TRACT INFECTION
     Route: 048
     Dates: start: 20140619
  6. CITALOPRAM [Concomitant]
     Active Substance: CITALOPRAM HYDROBROMIDE
  7. FOSTAIR [Concomitant]
  8. LANSOPRAZOLE. [Concomitant]
     Active Substance: LANSOPRAZOLE
  9. PARACETAMOL [Concomitant]
     Active Substance: ACETAMINOPHEN
  10. ZOPICLONE [Concomitant]
     Active Substance: ZOPICLONE
  11. TRIMETHOPRIM 100MG (TRIMETHOPRIM) UKNOWN, 100MG [Suspect]
     Active Substance: TRIMETHOPRIM
     Indication: URINARY TRACT INFECTION
     Route: 048
     Dates: end: 20140627
  12. MOVELAT [Concomitant]
  13. NICORANDIL [Concomitant]
     Active Substance: NICORANDIL
  14. NYSTATIN. [Concomitant]
     Active Substance: NYSTATIN
  15. SIMVASTATIN. [Concomitant]
     Active Substance: SIMVASTATIN

REACTIONS (4)
  - Treatment failure [None]
  - Renal failure acute [None]
  - Medication error [None]
  - Prescribed underdose [None]
